FAERS Safety Report 26043824 (Version 2)
Quarter: 2025Q4

REPORT INFORMATION
  Report Type: Spontaneous
  Country: EU (occurrence: EU)
  Receive Date: 20251114
  Receipt Date: 20251124
  Transmission Date: 20260119
  Serious: No
  Sender: ASTELLAS
  Company Number: EU-ASTELLAS-2025-AER-061431

PATIENT
  Age: 10 Year
  Sex: Male

DRUGS (2)
  1. VESICARE [Suspect]
     Active Substance: SOLIFENACIN SUCCINATE
     Indication: Micturition urgency
     Dosage: 2 TABLETS X 5 MG
     Route: 065
  2. VESICARE [Suspect]
     Active Substance: SOLIFENACIN SUCCINATE
     Indication: Urinary hesitation
     Dosage: 2 TABLETS X 10 MG
     Route: 065

REACTIONS (8)
  - Visual impairment [Unknown]
  - Headache [Unknown]
  - Decreased appetite [Unknown]
  - Fatigue [Unknown]
  - Irritability [Unknown]
  - Accidental overdose [Unknown]
  - Product dispensing error [Unknown]
  - Off label use [Unknown]
